FAERS Safety Report 14477001 (Version 1)
Quarter: 2018Q1

REPORT INFORMATION
  Report Type: Report from Study
  Country: US (occurrence: US)
  Receive Date: 20180201
  Receipt Date: 20180201
  Transmission Date: 20180509
  Serious: No
  Sender: FDA-Public Use
  Company Number: US-EXELIXIS-CABO-17008150

PATIENT
  Sex: Male

DRUGS (4)
  1. COMETRIQ [Suspect]
     Active Substance: CABOZANTINIB S-MALATE
     Indication: PROSTATE CANCER
     Dosage: 60 MG, QD
     Route: 048
     Dates: start: 20160408, end: 201701
  2. GABAPENTIN. [Concomitant]
     Active Substance: GABAPENTIN
  3. RETADINE [Concomitant]
  4. COMETRIQ [Suspect]
     Active Substance: CABOZANTINIB S-MALATE
     Dosage: 60 MG, QD
     Route: 048
     Dates: start: 2017

REACTIONS (4)
  - Diarrhoea [Unknown]
  - Neoplasm progression [Unknown]
  - Biopsy oesophagus [Unknown]
  - Off label use [Unknown]
